FAERS Safety Report 9818223 (Version 1)
Quarter: 2014Q1

REPORT INFORMATION
  Report Type: Spontaneous
  Country: PT (occurrence: FR)
  Receive Date: 20140115
  Receipt Date: 20140115
  Transmission Date: 20141002
  Serious: Yes (Hospitalization, Other)
  Sender: FDA-Public Use
  Company Number: 2014SP000078

PATIENT
  Age: 41 Year
  Sex: Female

DRUGS (9)
  1. ZEBINIX (ESLICARBAZEPINE ACETATE) [Suspect]
     Indication: EPILEPSY
     Route: 048
     Dates: start: 201206
  2. ZEBINIX (ESLICARBAZEPINE ACETATE) [Suspect]
     Indication: EPILEPSY
     Route: 048
     Dates: start: 201206
  3. TEGRETOL LP [Suspect]
     Indication: EPILEPSY
     Route: 048
  4. TEGRETOL LP [Suspect]
     Indication: EPILEPSY
     Route: 048
  5. EPITOMAX [Concomitant]
     Indication: EPILEPSY
     Route: 048
  6. EPITOMAX [Concomitant]
     Indication: EPILEPSY
     Route: 048
  7. KEPPRA [Concomitant]
     Indication: EPILEPSY
     Route: 048
  8. SPECIAFOLDINE [Concomitant]
     Indication: PRODUCT USED FOR UNKNOWN INDICATION
     Route: 048
  9. URBANYL [Concomitant]
     Indication: EPILEPSY
     Route: 048

REACTIONS (3)
  - Anaemia folate deficiency [Recovering/Resolving]
  - Hyponatraemia [Not Recovered/Not Resolved]
  - Oedema peripheral [Unknown]
